FAERS Safety Report 6020569-3 (Version None)
Quarter: 2008Q4

REPORT INFORMATION
  Report Type: 
  Country: None (occurrence: None)
  Receive Date: 20081227
  Receipt Date: 20081217
  Transmission Date: 20090506
  Serious: No
  Sender: FDA-Public Use
  Company Number: US-JNJFOC-20081204797

PATIENT
  Sex: Female
  Weight: 104.33 kg

DRUGS (4)
  1. FENTANYL TRANSDERMAL SYSTEM [Suspect]
     Route: 062
  2. FENTANYL TRANSDERMAL SYSTEM [Suspect]
     Indication: ARTHRALGIA
     Route: 062
  3. LEVOTHYROXINE [Concomitant]
     Indication: THYROID DISORDER
     Route: 048
  4. OXYCODONE [Concomitant]
     Indication: BREAKTHROUGH PAIN
     Route: 048

REACTIONS (1)
  - EXPIRED DRUG ADMINISTERED [None]
